FAERS Safety Report 10133750 (Version 1)
Quarter: 2014Q2

REPORT INFORMATION
  Report Type: Spontaneous
  Country: AT (occurrence: AT)
  Receive Date: 20140428
  Receipt Date: 20140428
  Transmission Date: 20141212
  Serious: Yes (Other)
  Sender: FDA-Public Use
  Company Number: AT-NAPPMUNDI-DEU-2014-0014229

PATIENT
  Age: 29 Year
  Sex: Male

DRUGS (1)
  1. SUBSTITOL RETARD KAPSELN [Suspect]
     Indication: PRODUCT USED FOR UNKNOWN INDICATION
     Dosage: UNK

REACTIONS (5)
  - Toxicity to various agents [Unknown]
  - Road traffic accident [Unknown]
  - Gait disturbance [Unknown]
  - Miosis [Unknown]
  - Dysarthria [Unknown]
